FAERS Safety Report 10102815 (Version 1)
Quarter: 2014Q2

REPORT INFORMATION
  Report Type: Spontaneous
  Country: US (occurrence: US)
  Receive Date: 20140424
  Receipt Date: 20140424
  Transmission Date: 20141212
  Serious: Yes (Hospitalization)
  Sender: FDA-Public Use
  Company Number: US-BRISTOL-MYERS SQUIBB COMPANY-20553707

PATIENT
  Age: 67 Year
  Sex: Male

DRUGS (1)
  1. ELIQUIS [Suspect]
     Dosage: DOSE INCREASED TO 10MG

REACTIONS (2)
  - Cerebrovascular accident [Unknown]
  - Inappropriate schedule of drug administration [Unknown]
